FAERS Safety Report 16906063 (Version 1)
Quarter: 2019Q4

REPORT INFORMATION
  Report Type: Spontaneous
  Country: CA (occurrence: CA)
  Receive Date: 20191010
  Receipt Date: 20191010
  Transmission Date: 20200122
  Serious: Yes (Other)
  Sender: FDA-Public Use
  Company Number: CA-AUROBINDO-AUR-APL-2019-065509

PATIENT
  Sex: Female

DRUGS (12)
  1. DESIPRAMINE [Suspect]
     Active Substance: DESIPRAMINE
     Indication: PRODUCT USED FOR UNKNOWN INDICATION
     Dosage: 30 MILLIGRAM, ONCE A DAY
     Route: 048
  2. NORTRIPTYLINE HYDROCHLORIDE. [Suspect]
     Active Substance: NORTRIPTYLINE HYDROCHLORIDE
     Indication: PANIC ATTACK
     Dosage: 35 MILLIGRAM, ONCE A DAY
     Route: 048
  3. AMITRIPTYLINE [Suspect]
     Active Substance: AMITRIPTYLINE
     Indication: PANIC ATTACK
     Dosage: UNK
     Route: 065
  4. DESIPRAMINE [Suspect]
     Active Substance: DESIPRAMINE
     Dosage: 70 MILLIGRAM, ONCE A DAY
     Route: 048
  5. VORTIOXETINE HYDROBROMIDE [Concomitant]
     Active Substance: VORTIOXETINE HYDROBROMIDE
     Indication: PANIC ATTACK
     Dosage: 20 MILLIGRAM, ONCE A DAY
     Route: 048
  6. NORTRIPTYLINE HYDROCHLORIDE. [Suspect]
     Active Substance: NORTRIPTYLINE HYDROCHLORIDE
     Dosage: 20 MILLIGRAM, ONCE A DAY
     Route: 048
  7. VORTIOXETINE HYDROBROMIDE [Concomitant]
     Active Substance: VORTIOXETINE HYDROBROMIDE
     Indication: ANXIETY
  8. CELECOXIB. [Suspect]
     Active Substance: CELECOXIB
     Indication: PRODUCT USED FOR UNKNOWN INDICATION
     Dosage: 2 DOSAGE FORM
     Route: 065
  9. ZYPREXA [Concomitant]
     Active Substance: OLANZAPINE
     Indication: ANXIETY
     Dosage: 1.25 MILLIGRAM, ONCE A DAY
     Route: 048
  10. APO NAPROXEN [Suspect]
     Active Substance: NAPROXEN
     Indication: ADVERSE REACTION
     Dosage: 2 DOSAGE FORM, ONCE A DAY
     Route: 065
  11. NORTRIPTYLINE HYDROCHLORIDE. [Suspect]
     Active Substance: NORTRIPTYLINE HYDROCHLORIDE
     Indication: PANIC ATTACK
     Dosage: 10 MILLIGRAM, ONCE A DAY
     Route: 048
  12. DESIPRAMINE [Suspect]
     Active Substance: DESIPRAMINE
     Dosage: 50 MILLIGRAM, ONCE A DAY
     Route: 048

REACTIONS (5)
  - Hypoaesthesia [Not Recovered/Not Resolved]
  - Loss of consciousness [Not Recovered/Not Resolved]
  - Drug ineffective [Not Recovered/Not Resolved]
  - Condition aggravated [Not Recovered/Not Resolved]
  - Pain in extremity [Not Recovered/Not Resolved]
